FAERS Safety Report 15552321 (Version 2)
Quarter: 2018Q4

REPORT INFORMATION
  Report Type: Report from Study
  Country: ZA (occurrence: ZA)
  Receive Date: 20181025
  Receipt Date: 20181217
  Transmission Date: 20190205
  Serious: Yes (Other)
  Sender: FDA-Public Use
  Company Number: ZA-SA-2018SA290561

PATIENT
  Age: 54 Year
  Sex: Female

DRUGS (7)
  1. BIGUANIDE [Concomitant]
     Active Substance: UNSPECIFIED INGREDIENT
     Route: 048
  2. NO STUDY DRUG GIVEN [Suspect]
     Active Substance: UNSPECIFIED INGREDIENT
  3. TOUJEO [Suspect]
     Active Substance: INSULIN GLARGINE
     Dosage: 62 U, QD
     Dates: start: 20181011
  4. DIAGLUCIDE [Concomitant]
     Active Substance: GLICLAZIDE
     Dosage: 30 MG, QD
     Dates: start: 20181017
  5. MENGEN [Concomitant]
     Active Substance: METFORMIN HYDROCHLORIDE
     Dosage: 1000 U, BID
     Dates: start: 20181017
  6. PREXUM [Concomitant]
     Active Substance: PERINDOPRIL ERBUMINE
     Dosage: 4 MG, QD
     Dates: start: 20181017
  7. OPTISULIN (INSULIN GLARGINE) [Suspect]
     Active Substance: INSULIN GLARGINE
     Indication: TYPE 2 DIABETES MELLITUS
     Dosage: 30 UNK, QD
     Route: 065
     Dates: start: 20160116

REACTIONS (3)
  - Cystitis [Not Recovered/Not Resolved]
  - Infection [Not Recovered/Not Resolved]
  - Facial paralysis [Not Recovered/Not Resolved]

NARRATIVE: CASE EVENT DATE: 20180628
